FAERS Safety Report 9792150 (Version 1)
Quarter: 2013Q4

REPORT INFORMATION
  Report Type: Spontaneous
  Country: US (occurrence: None)
  Receive Date: 20131231
  Receipt Date: 20131231
  Transmission Date: 20140711
  Serious: Yes (Other)
  Sender: FDA-Public Use
  Company Number: None

PATIENT
  Age: 42 Year
  Sex: Female

DRUGS (6)
  1. BOTOX [Suspect]
     Route: 030
     Dates: start: 20131226
  2. VERAPAMIL [Concomitant]
  3. EFFEXOR [Concomitant]
  4. CONCERTA [Concomitant]
  5. NASONEX [Concomitant]
  6. VITAMIN B-12 [Concomitant]

REACTIONS (2)
  - Eye swelling [None]
  - Swelling face [None]
